FAERS Safety Report 10432344 (Version 2)
Quarter: 2014Q3

REPORT INFORMATION
  Report Type: Report from Study
  Country: ES (occurrence: ES)
  Receive Date: 20140905
  Receipt Date: 20140917
  Transmission Date: 20150326
  Serious: Yes (Hospitalization)
  Sender: FDA-Public Use
  Company Number: ES-ROCHE-1457175

PATIENT
  Age: 74 Year
  Sex: Female
  Weight: 58.5 kg

DRUGS (3)
  1. BEVACIZUMAB [Suspect]
     Active Substance: BEVACIZUMAB
     Indication: OVARIAN CANCER
     Dosage: DATE OF LAST DOSE PRIOR TO SAE: 18/AUG/2014
     Route: 042
     Dates: start: 20120326, end: 20140910
  2. PACLITAXEL. [Suspect]
     Active Substance: PACLITAXEL
     Indication: OVARIAN CANCER
     Dosage: DATE OF LAST DOSE PRIOR TO SAE : 31/JUL/2012.
     Route: 042
     Dates: start: 20120326
  3. CARBOPLATIN. [Suspect]
     Active Substance: CARBOPLATIN
     Indication: OVARIAN CANCER
     Dosage: DATE OF LAST DOSE PRIOR TO SAE : 31/JUL/2012.
     Route: 042
     Dates: start: 20120326

REACTIONS (1)
  - Renal failure [Not Recovered/Not Resolved]

NARRATIVE: CASE EVENT DATE: 20140818
